FAERS Safety Report 4272847-6 (Version None)
Quarter: 2004Q1

REPORT INFORMATION
  Report Type: 
  Country: None (occurrence: None)
  Receive Date: 20040114
  Receipt Date: 20040106
  Transmission Date: 20041129
  Serious: No
  Sender: FDA-Public Use
  Company Number: 2003UW12066

PATIENT
  Age: 8 Year
  Sex: Male
  Weight: 70 kg

DRUGS (3)
  1. SEROQUEL [Suspect]
     Indication: PSYCHOTIC DISORDER
     Dosage: 600 MG DAILY PO
     Route: 048
  2. DEPAKOTE [Concomitant]
  3. ZYPREXA [Concomitant]

REACTIONS (1)
  - OCULOGYRATION [None]
